FAERS Safety Report 8843818 (Version 2)
Quarter: 2014Q1

REPORT INFORMATION
  Report Type: Spontaneous
  Country: US (occurrence: US)
  Receive Date: 20121016
  Receipt Date: 20140321
  Transmission Date: 20141002
  Serious: Yes (Disabling, Other)
  Sender: FDA-Public Use
  Company Number: US-009507513-1210USA004477

PATIENT
  Sex: Female
  Weight: 68.27 kg

DRUGS (6)
  1. FOSAMAX [Suspect]
     Indication: OSTEOPOROSIS
     Dosage: 5 MG, QAM
     Route: 048
     Dates: start: 20000410, end: 20070820
  2. FOSAMAX [Suspect]
     Dosage: 10 MG, UNK
     Route: 048
     Dates: start: 20001012, end: 20070820
  3. FOSAMAX [Suspect]
     Dosage: 70 MG, QW
     Route: 048
     Dates: start: 20020617, end: 20070820
  4. FOSAMAX [Suspect]
     Indication: OSTEOPOROSIS
     Dosage: UNK
     Route: 048
     Dates: start: 2000, end: 2010
  5. FOSAMAX PLUS D [Suspect]
     Indication: OSTEOPOROSIS
     Dosage: 70MG-2800IU, QW
     Route: 048
     Dates: start: 20071024, end: 20100318
  6. ALENDRONATE SODIUM [Suspect]
     Indication: OSTEOPOROSIS
     Dosage: 70 MG, UNK
     Dates: start: 20100804, end: 20101218

REACTIONS (9)
  - Femur fracture [Not Recovered/Not Resolved]
  - Tibia fracture [Unknown]
  - Low turnover osteopathy [Not Recovered/Not Resolved]
  - Depression [Unknown]
  - Ankle fracture [Unknown]
  - Foot fracture [Unknown]
  - Varicose vein [Unknown]
  - Exostosis [Unknown]
  - Bone disorder [Unknown]
